FAERS Safety Report 11549677 (Version 3)
Quarter: 2015Q4

REPORT INFORMATION
  Report Type: Spontaneous
  Country: US (occurrence: US)
  Receive Date: 20150924
  Receipt Date: 20151029
  Transmission Date: 20160304
  Serious: Yes (Hospitalization)
  Sender: FDA-Public Use
  Company Number: US-INCYTE CORPORATION-2015IN003647

PATIENT
  Sex: Male

DRUGS (11)
  1. KEFLEX [Concomitant]
     Active Substance: CEPHALEXIN
  2. LOSARTAN. [Concomitant]
     Active Substance: LOSARTAN
     Indication: HYPERTENSION
  3. EXJADE [Concomitant]
     Active Substance: DEFERASIROX
  4. RANITIDINE [Concomitant]
     Active Substance: RANITIDINE\RANITIDINE HYDROCHLORIDE
  5. JAKAFI [Suspect]
     Active Substance: RUXOLITINIB
     Indication: MYELOFIBROSIS
     Dosage: 25 MG, BID
     Route: 048
     Dates: start: 20130917
  6. PLAVIX [Concomitant]
     Active Substance: CLOPIDOGREL BISULFATE
  7. AUGMENTIN [Concomitant]
     Active Substance: AMOXICILLIN\CLAVULANATE POTASSIUM
     Dosage: UNK
     Dates: start: 2014
  8. TRICOR                             /00090101/ [Concomitant]
     Active Substance: ADENOSINE
  9. HYDROXYUREA. [Concomitant]
     Active Substance: HYDROXYUREA
  10. PROCRIT [Concomitant]
     Active Substance: ERYTHROPOIETIN
  11. TRAMADOL. [Concomitant]
     Active Substance: TRAMADOL

REACTIONS (2)
  - Lip and/or oral cavity cancer [Unknown]
  - Stomatitis [Not Recovered/Not Resolved]
